FAERS Safety Report 23134711 (Version 4)
Quarter: 2025Q4

REPORT INFORMATION
  Report Type: Report from Study
  Country: GB (occurrence: GB)
  Receive Date: 20231101
  Receipt Date: 20251015
  Transmission Date: 20260118
  Serious: Yes (Other)
  Sender: TAKEDA
  Company Number: GB-TAKEDA-2023TUS082412

PATIENT
  Sex: Female

DRUGS (2)
  1. VEDOLIZUMAB [Suspect]
     Active Substance: VEDOLIZUMAB
     Indication: Crohn^s disease
     Dosage: 108 MILLIGRAM, Q2WEEKS
     Dates: start: 20230807
  2. VEDOLIZUMAB [Suspect]
     Active Substance: VEDOLIZUMAB

REACTIONS (6)
  - Crohn^s disease [Unknown]
  - Product distribution issue [Unknown]
  - Insomnia [Unknown]
  - Product dose omission issue [Unknown]
  - Malaise [Unknown]
  - Arthralgia [Unknown]
